FAERS Safety Report 18495650 (Version 2)
Quarter: 2025Q2

REPORT INFORMATION
  Report Type: Report from Study
  Country: US (occurrence: US)
  Receive Date: 20201112
  Receipt Date: 20250620
  Transmission Date: 20250717
  Serious: Yes (Hospitalization)
  Sender: AUROBINDO
  Company Number: US-MYLANLABS-2020M1093771

PATIENT
  Age: 21 Year
  Sex: Male

DRUGS (1)
  1. PAROXETINE [Suspect]
     Active Substance: PAROXETINE
     Indication: Product used for unknown indication
     Route: 048

REACTIONS (7)
  - Serotonin syndrome [Unknown]
  - Apnoeic attack [Unknown]
  - Myoclonus [Unknown]
  - Mental status changes [Unknown]
  - Muscle rigidity [Unknown]
  - Vomiting [Unknown]
  - Apnoea [Unknown]
